FAERS Safety Report 4740863-3 (Version None)
Quarter: 2005Q3

REPORT INFORMATION
  Report Type: 
  Country: None (occurrence: None)
  Receive Date: 20050810
  Receipt Date: 20050110
  Transmission Date: 20060218
  Serious: No
  Sender: FDA-Public Use
  Company Number: US-GLAXOSMITHKLINE-A0539941A

PATIENT
  Age: 38 Year
  Sex: Female

DRUGS (2)
  1. TAGAMET HB 200 [Suspect]
     Dates: start: 20050109, end: 20050109
  2. LAXATIVE [Concomitant]

REACTIONS (8)
  - ABDOMINAL PAIN UPPER [None]
  - ASTHENIA [None]
  - BACK PAIN [None]
  - COLD SWEAT [None]
  - DIZZINESS [None]
  - DYSGEUSIA [None]
  - NAUSEA [None]
  - TREMOR [None]
